FAERS Safety Report 16348580 (Version 1)
Quarter: 2019Q2

REPORT INFORMATION
  Report Type: Spontaneous
  Country: US (occurrence: US)
  Receive Date: 20190523
  Receipt Date: 20190523
  Transmission Date: 20190711
  Serious: No
  Sender: FDA-Public Use
  Company Number: US-HERITAGE PHARMACEUTICALS-2019HTG00147

PATIENT
  Sex: Male
  Weight: 49.43 kg

DRUGS (3)
  1. DIAZEPAM. [Concomitant]
     Active Substance: DIAZEPAM
  2. BUPROPION HYDROCHLORIDE. [Suspect]
     Active Substance: BUPROPION HYDROCHLORIDE
     Indication: DEPRESSION
     Dosage: 100 MG, 2X/DAY
     Route: 048
  3. BUPROPION HYDROCHLORIDE. [Suspect]
     Active Substance: BUPROPION HYDROCHLORIDE
     Indication: DEPRESSION
     Dosage: 75 MG TWICE A DAY BUT UNSURE MAYBE 3 TIMES A DAY
     Route: 048

REACTIONS (2)
  - Wrong technique in product usage process [Not Recovered/Not Resolved]
  - Weight decreased [Not Recovered/Not Resolved]

NARRATIVE: CASE EVENT DATE: 2019
